FAERS Safety Report 14032081 (Version 10)
Quarter: 2018Q2

REPORT INFORMATION
  Report Type: Report from Study
  Country: BE (occurrence: BE)
  Receive Date: 20171003
  Receipt Date: 20180621
  Transmission Date: 20180711
  Serious: Yes (Hospitalization)
  Sender: FDA-Public Use
  Company Number: BE-ROCHE-1978117

PATIENT
  Age: 73 Year
  Sex: Male
  Weight: 56.2 kg

DRUGS (19)
  1. ISOTEN MINOR [Concomitant]
     Route: 048
  2. D-CURE [Concomitant]
     Active Substance: CHOLECALCIFEROL
     Route: 048
     Dates: start: 20170822
  3. BLINDED SILDENAFIL [Suspect]
     Active Substance: SILDENAFIL
     Indication: IDIOPATHIC PULMONARY FIBROSIS
     Dosage: DATE OF MOST RECENT DOSE PRIOR TO ONSET OF AE: 14/SEP/2017
     Route: 048
     Dates: start: 20170901
  4. AUGMENTIN [Suspect]
     Active Substance: AMOXICILLIN\CLAVULANATE POTASSIUM
     Indication: PNEUMONIA
     Route: 048
     Dates: start: 20170814, end: 20170817
  5. ATORSTAT [Concomitant]
     Active Substance: ATORVASTATIN CALCIUM
     Route: 048
  6. ELIQUIS [Concomitant]
     Active Substance: APIXABAN
     Route: 048
     Dates: start: 20170511
  7. TARDYFERON (BELGIUM) [Concomitant]
     Route: 048
     Dates: start: 20170620, end: 20170820
  8. PIRFENIDONE. [Suspect]
     Active Substance: PIRFENIDONE
     Indication: IDIOPATHIC PULMONARY FIBROSIS
     Dosage: DATE OF MOST RECENT DOSE OF PIRFENIDONE PRIOR TO AE ONSET : 07/AUG/2017.?DOSE OF LAST PIRFENIDONE AD
     Route: 048
     Dates: start: 20170426
  9. AUGMENTIN [Suspect]
     Active Substance: AMOXICILLIN\CLAVULANATE POTASSIUM
     Indication: C-REACTIVE PROTEIN INCREASED
     Route: 048
     Dates: start: 20170907, end: 20170915
  10. TILDIEM [Concomitant]
     Active Substance: DILTIAZEM HYDROCHLORIDE
     Route: 048
  11. ENTACT [Concomitant]
     Active Substance: ESCITALOPRAM OXALATE
     Route: 048
  12. COVERSYL [Concomitant]
     Active Substance: PERINDOPRIL
     Route: 048
     Dates: start: 20170817
  13. CRESTOR [Concomitant]
     Active Substance: ROSUVASTATIN CALCIUM
     Indication: PNEUMONIA
     Route: 048
     Dates: start: 20170808, end: 20170825
  14. HYDROFLUX [Concomitant]
     Route: 048
  15. ASAFLOW [Concomitant]
     Active Substance: ASPIRIN
     Route: 048
  16. BURINEX [Concomitant]
     Active Substance: BUMETANIDE
     Route: 048
     Dates: start: 20170831
  17. GLUCOPHAGE [Concomitant]
     Active Substance: METFORMIN HYDROCHLORIDE
     Route: 048
     Dates: start: 20170823
  18. PANTOMED (BELGIUM) [Concomitant]
     Route: 048
  19. BURINEX [Concomitant]
     Active Substance: BUMETANIDE
     Route: 048
     Dates: end: 20170830

REACTIONS (2)
  - Pneumonia [Recovered/Resolved]
  - Cholestasis [Recovered/Resolved]

NARRATIVE: CASE EVENT DATE: 20170808
